FAERS Safety Report 20145643 (Version 1)
Quarter: 2021Q4

REPORT INFORMATION
  Report Type: Spontaneous
  Country: US (occurrence: US)
  Receive Date: 20211203
  Receipt Date: 20211203
  Transmission Date: 20220303
  Serious: No
  Sender: FDA-Public Use
  Company Number: US-009507513-2111USA002418

PATIENT
  Age: 21 Year
  Sex: Male

DRUGS (1)
  1. NOXAFIL [Suspect]
     Active Substance: POSACONAZOLE
     Indication: Rhinocerebral mucormycosis
     Dosage: UNK
     Route: 048

REACTIONS (1)
  - Product use in unapproved indication [Unknown]
